FAERS Safety Report 18607931 (Version 2)
Quarter: 2021Q2

REPORT INFORMATION
  Report Type: Spontaneous
  Country: US (occurrence: US)
  Receive Date: 20201212
  Receipt Date: 20210417
  Transmission Date: 20210717
  Serious: No
  Sender: FDA-Public Use
  Company Number: NVSC2020US327350

PATIENT
  Sex: Female

DRUGS (1)
  1. COSENTYX [Suspect]
     Active Substance: SECUKINUMAB
     Indication: PRODUCT USED FOR UNKNOWN INDICATION
     Dosage: 150 MG, Q2MO
     Route: 065
     Dates: start: 201906

REACTIONS (2)
  - Pain [Unknown]
  - Product dose omission issue [Unknown]
